FAERS Safety Report 6090379-X (Version None)
Quarter: 2009Q1

REPORT INFORMATION
  Report Type: 
  Country: None (occurrence: None)
  Receive Date: 20090220
  Receipt Date: 20090204
  Transmission Date: 20090719
  Serious: Yes (Hospitalization, Other)
  Sender: FDA-Public Use
  Company Number: 000325

PATIENT

DRUGS (1)
  1. NEUPRO [Suspect]
     Dosage: (TRANSDERMAL)
     Route: 062

REACTIONS (2)
  - DIATHERMY [None]
  - INTESTINAL RESECTION [None]
